FAERS Safety Report 4950761-8 (Version None)
Quarter: 2006Q1

REPORT INFORMATION
  Report Type: 
  Country: None (occurrence: None)
  Receive Date: 20060322
  Receipt Date: 20060309
  Transmission Date: 20060701
  Serious: Yes (Other)
  Sender: FDA-Public Use
  Company Number: JP-ROCHE-439982

PATIENT
  Age: 11 Year
  Sex: Male
  Weight: 35 kg

DRUGS (4)
  1. TAMIFLU [Suspect]
     Route: 048
     Dates: start: 20060220
  2. ANYRUME [Concomitant]
     Dosage: FORMULATION REPORTED AS FINE GRANULE. TAKEN WITH A FREQUENCY OF 1/1 DAY AS NEEDED.
     Route: 048
  3. MUCOTRON [Concomitant]
     Dosage: DIVIDED INTO THREE DOSES.
     Route: 048
  4. UNSPECIFIED MEDICATION [Concomitant]
     Dosage: REPORTED AS HUSTEN. DIVIDED INTO 3 DOSES.
     Route: 048

REACTIONS (2)
  - ENCEPHALOPATHY [None]
  - HALLUCINATION [None]
